FAERS Safety Report 9516851 (Version 2)
Quarter: 2013Q4

REPORT INFORMATION
  Report Type: Spontaneous
  Country: US (occurrence: US)
  Receive Date: 20130911
  Receipt Date: 20131114
  Transmission Date: 20140711
  Serious: No
  Sender: FDA-Public Use
  Company Number: US-PFIZER INC-2013256826

PATIENT
  Age: 84 Year
  Sex: Female

DRUGS (2)
  1. AROMASIN [Suspect]
     Indication: BREAST CANCER
     Dosage: 25 MG, 1X/DAY
     Dates: start: 20121219
  2. AROMASIN [Suspect]
     Dosage: 2.5 MG, DAILY
     Route: 048
     Dates: end: 20130712

REACTIONS (1)
  - Diarrhoea [Recovered/Resolved]
